FAERS Safety Report 12506721 (Version 2)
Quarter: 2016Q4

REPORT INFORMATION
  Report Type: Spontaneous
  Country: GB (occurrence: GB)
  Receive Date: 20160628
  Receipt Date: 20161213
  Transmission Date: 20170207
  Serious: Yes (Other)
  Sender: FDA-Public Use
  Company Number: PHHY2016GB085186

PATIENT
  Age: 50 Year
  Sex: Female
  Weight: 83.46 kg

DRUGS (2)
  1. RAMIPRIL. [Concomitant]
     Active Substance: RAMIPRIL
     Indication: PRODUCT USED FOR UNKNOWN INDICATION
     Route: 065
  2. AMLODIPINE [Suspect]
     Active Substance: AMLODIPINE BESYLATE
     Indication: HYPERTENSION
     Dosage: 5 MG, UNK
     Route: 048
     Dates: start: 20160513, end: 20160527

REACTIONS (14)
  - Ear discomfort [Recovered/Resolved with Sequelae]
  - Swelling face [Unknown]
  - Otitis externa [Unknown]
  - Hypoacusis [Recovering/Resolving]
  - Otorrhoea [Unknown]
  - Skin exfoliation [Unknown]
  - Tenderness [Unknown]
  - Oropharyngeal pain [Unknown]
  - Tinnitus [Not Recovered/Not Resolved]
  - Deafness bilateral [Recovered/Resolved with Sequelae]
  - Ear canal erythema [Unknown]
  - Pruritus [Unknown]
  - Ear pain [Recovered/Resolved with Sequelae]
  - Ear congestion [Unknown]

NARRATIVE: CASE EVENT DATE: 20160517
